FAERS Safety Report 12661341 (Version 2)
Quarter: 2016Q3

REPORT INFORMATION
  Report Type: Spontaneous
  Country: US (occurrence: US)
  Receive Date: 20160817
  Receipt Date: 20160901
  Transmission Date: 20161109
  Serious: No
  Sender: FDA-Public Use
  Company Number: US-RELYPSA-RLY2016000894

PATIENT
  Age: 63 Year
  Sex: Male

DRUGS (8)
  1. ASPIRIN                            /00002701/ [Concomitant]
     Active Substance: ASPIRIN
  2. ISOSORBIDE MONONITRATE COX [Concomitant]
     Active Substance: ISOSORBIDE MONONITRATE
  3. VELTASSA [Suspect]
     Active Substance: PATIROMER
     Indication: HYPERKALAEMIA
     Dosage: 8.4 G, Q.D.
     Route: 048
     Dates: start: 20160518
  4. MIRALAX [Concomitant]
     Active Substance: POLYETHYLENE GLYCOL 3350
  5. CARVEDILOL. [Concomitant]
     Active Substance: CARVEDILOL
  6. NOVOLOG [Concomitant]
     Active Substance: INSULIN ASPART
  7. LEVEMIR [Concomitant]
     Active Substance: INSULIN DETEMIR
  8. LIPITOR [Concomitant]
     Active Substance: ATORVASTATIN CALCIUM

REACTIONS (1)
  - Flatulence [Unknown]

NARRATIVE: CASE EVENT DATE: 201605
